FAERS Safety Report 14660803 (Version 3)
Quarter: 2018Q2

REPORT INFORMATION
  Report Type: Spontaneous
  Country: IL (occurrence: IL)
  Receive Date: 20180320
  Receipt Date: 20180502
  Transmission Date: 20180711
  Serious: Yes (Hospitalization, Other)
  Sender: FDA-Public Use
  Company Number: IL-009507513-1803ISR005936

PATIENT
  Age: 27 Year
  Sex: Female

DRUGS (4)
  1. CELESTONE CHRONODOSE [Suspect]
     Active Substance: BETAMETHASONE ACETATE\BETAMETHASONE SODIUM PHOSPHATE
     Indication: THREATENED LABOUR
  2. PROGESTERONE. [Concomitant]
     Active Substance: PROGESTERONE
     Indication: THREATENED LABOUR
     Dosage: 200 MG/DAY, FOR THE PAST FEW WEEKS
     Route: 067
  3. PRESSOLAT [Concomitant]
     Indication: THREATENED LABOUR
     Dosage: 20 MG, QID, FOR THE PAST FEW WEEKS
  4. CELESTONE CHRONODOSE [Suspect]
     Active Substance: BETAMETHASONE ACETATE\BETAMETHASONE SODIUM PHOSPHATE
     Indication: SHORTENED CERVIX
     Dosage: 12 MG, A COURSE OF TWO INTRAMUSCULAR INJECTIONS (IN TOTAL)
     Route: 030

REACTIONS (3)
  - Maternal exposure during pregnancy [Recovered/Resolved]
  - Breast engorgement [Recovered/Resolved]
  - Galactorrhoea [Recovered/Resolved]
